FAERS Safety Report 8267636-1 (Version None)
Quarter: 2012Q2

REPORT INFORMATION
  Report Type: 
  Country: None (occurrence: None)
  Receive Date: 20120409
  Receipt Date: 20120327
  Transmission Date: 20120825
  Serious: Yes (Hospitalization, Other)
  Sender: FDA-Public Use
  Company Number: US-ELI_LILLY_AND_COMPANY-US201203009179

PATIENT
  Age: 75 Year
  Sex: Female

DRUGS (10)
  1. BENICAR HCT [Concomitant]
  2. TOPROL-XL [Concomitant]
  3. ASPIRIN                                 /USA/ [Concomitant]
  4. PRILOSEC [Concomitant]
  5. CYMBALTA [Suspect]
     Indication: FIBROMYALGIA
     Dosage: 60 MG, EACH EVENING
     Dates: start: 20100101
  6. CYMBALTA [Suspect]
     Dosage: 60 MG, QD
  7. ETODOLAC [Concomitant]
  8. CYMBALTA [Suspect]
     Dosage: 30 MG, QD
  9. NORVASC [Concomitant]
  10. ZOCOR [Concomitant]

REACTIONS (5)
  - MONOPLEGIA [None]
  - INTERVERTEBRAL DISC OPERATION [None]
  - NECK PAIN [None]
  - MEDICATION ERROR [None]
  - HEADACHE [None]
